FAERS Safety Report 21295945 (Version 1)
Quarter: 2022Q3

REPORT INFORMATION
  Report Type: Spontaneous
  Country: NL (occurrence: NL)
  Receive Date: 20220906
  Receipt Date: 20220906
  Transmission Date: 20221027
  Serious: Yes (Other)
  Sender: FDA-Public Use
  Company Number: NL-SUN PHARMACEUTICAL INDUSTRIES LTD-2022RR-353526

PATIENT
  Age: 83 Year
  Sex: Male
  Weight: 54 kg

DRUGS (3)
  1. TAMSULOSIN [Suspect]
     Active Substance: TAMSULOSIN
     Indication: Micturition disorder
     Dosage: 0.4 MILLIGRAM, DAILY, 1X A DAY, TAMSULOSINE CAPSULE MGA 0,4MG
     Route: 065
     Dates: start: 20220803, end: 20220808
  2. CARBASALAATCALCIUM BRUISTABLET  38MG / Brand name not specified [Concomitant]
     Indication: Product used for unknown indication
     Dosage: TABLET
     Route: 065
  3. CLOPIDOGREL TABLET   75MG / PLAVIX TABLET FILMOMHULD  75MG [Concomitant]
     Indication: Product used for unknown indication
     Dosage: TABLET, 75 MG (MILLIGRAM)
     Route: 065

REACTIONS (1)
  - Clonic convulsion [Recovered/Resolved]

NARRATIVE: CASE EVENT DATE: 20220807
